FAERS Safety Report 22795059 (Version 2)
Quarter: 2023Q4

REPORT INFORMATION
  Report Type: Spontaneous
  Country: US (occurrence: US)
  Receive Date: 20230807
  Receipt Date: 20231031
  Transmission Date: 20240110
  Serious: No
  Sender: FDA-Public Use
  Company Number: US-BRISTOL-MYERS SQUIBB COMPANY-2023-110533

PATIENT
  Age: 74 Year
  Sex: Male
  Weight: 87.09 kg

DRUGS (1)
  1. REVLIMID [Suspect]
     Active Substance: LENALIDOMIDE
     Indication: Plasma cell myeloma
     Dosage: FREQUENCY-3 WEEK ON 1 WEEK OFF
     Route: 048

REACTIONS (7)
  - Dyspnoea [Unknown]
  - Diarrhoea [Unknown]
  - Asthenia [Unknown]
  - Fatigue [Unknown]
  - Peripheral swelling [Unknown]
  - Muscle spasms [Unknown]
  - Dizziness [Unknown]
